FAERS Safety Report 23357975 (Version 7)
Quarter: 2024Q4

REPORT INFORMATION
  Report Type: Report from Study
  Country: JP (occurrence: JP)
  Receive Date: 20240102
  Receipt Date: 20241016
  Transmission Date: 20250115
  Serious: Yes (Hospitalization, Other)
  Sender: JOHNSON AND JOHNSON
  Company Number: JP-JNJFOC-20231275748

PATIENT
  Age: 62 Year
  Sex: Male
  Weight: 63.5 kg

DRUGS (38)
  1. ERLEADA [Suspect]
     Active Substance: APALUTAMIDE
     Indication: Hormone-dependent prostate cancer
     Route: 048
     Dates: start: 20230112
  2. ZYTIGA [Suspect]
     Active Substance: ABIRATERONE ACETATE
     Indication: Hormone-dependent prostate cancer
     Dosage: DOSE UNKNOWN
     Route: 048
  3. ZYTIGA [Suspect]
     Active Substance: ABIRATERONE ACETATE
     Route: 048
     Dates: start: 20230627
  4. ZYTIGA [Suspect]
     Active Substance: ABIRATERONE ACETATE
     Dosage: DOSE UNKNOWN
     Route: 048
     Dates: start: 20230418, end: 202305
  5. PANCURONIUM BROMIDE [Suspect]
     Active Substance: PANCURONIUM BROMIDE
     Indication: Nasopharyngitis
     Dosage: DOSE UNKNOWN, REGIMEN #1
     Route: 065
     Dates: start: 202301
  6. PANCURONIUM BROMIDE [Suspect]
     Active Substance: PANCURONIUM BROMIDE
     Indication: Nasopharyngitis
  7. PANCURONIUM BROMIDE [Suspect]
     Active Substance: PANCURONIUM BROMIDE
     Indication: Nasopharyngitis
  8. PANCURONIUM BROMIDE [Suspect]
     Active Substance: PANCURONIUM BROMIDE
     Indication: Nasopharyngitis
  9. METHYLPREDNISOLONE SODIUM SUCCINATE [Suspect]
     Active Substance: METHYLPREDNISOLONE SODIUM SUCCINATE
     Indication: Product used for unknown indication
     Route: 042
     Dates: start: 20230215
  10. METHYLPREDNISOLONE SODIUM SUCCINATE [Suspect]
     Active Substance: METHYLPREDNISOLONE SODIUM SUCCINATE
     Route: 042
     Dates: start: 20230517
  11. NAFTOPIDIL [Concomitant]
     Active Substance: NAFTOPIDIL
     Indication: Benign prostatic hyperplasia
     Dosage: DOSE UNKNOWN
     Route: 065
     Dates: start: 202211
  12. DEGARELIX ACETATE [Concomitant]
     Active Substance: DEGARELIX ACETATE
     Indication: Hormone-dependent prostate cancer
     Dosage: DOSE UNKNOWN
     Route: 048
     Dates: start: 20221213, end: 20221213
  13. DEGARELIX ACETATE [Concomitant]
     Active Substance: DEGARELIX ACETATE
     Indication: Hormone-dependent prostate cancer
     Dosage: DOSE UNKNOWN
     Route: 048
     Dates: start: 20230110
  14. LOXOPROFEN SODIUM DIHYDRATE [Concomitant]
     Active Substance: LOXOPROFEN SODIUM DIHYDRATE
     Indication: Product used for unknown indication
     Dosage: DOSE UNKNOWN
     Route: 065
     Dates: start: 20230301
  15. RABEPRAZOLE SODIUM [Concomitant]
     Active Substance: RABEPRAZOLE SODIUM
     Indication: Gastritis prophylaxis
     Route: 065
     Dates: start: 20230205, end: 20230214
  16. URSODIOL [Concomitant]
     Active Substance: URSODIOL
     Indication: Liver function test increased
     Route: 048
     Dates: start: 20230211, end: 20230214
  17. URSODIOL [Concomitant]
     Active Substance: URSODIOL
     Indication: Liver function test increased
     Route: 048
     Dates: start: 20230215, end: 20230306
  18. URSODIOL [Concomitant]
     Active Substance: URSODIOL
     Indication: Liver function test increased
     Route: 048
     Dates: start: 20230530
  19. VONOPRAZAN FUMARATE [Concomitant]
     Active Substance: VONOPRAZAN FUMARATE
     Indication: Gastritis prophylaxis
     Dosage: DOSE UNKNOWN
     Route: 065
     Dates: start: 20230213, end: 20230305
  20. AMIPHARGEN P [Concomitant]
     Indication: Hepatic function abnormal
     Route: 065
     Dates: start: 20230216
  21. AMIPHARGEN P [Concomitant]
     Indication: Hepatic function abnormal
     Route: 065
     Dates: start: 20230217, end: 20230220
  22. HEPARINOID [Concomitant]
     Indication: Dry skin prophylaxis
     Dosage: DOSE UNKNOWN
     Route: 065
     Dates: start: 20230226
  23. FAMOTIDINE [Concomitant]
     Active Substance: FAMOTIDINE
     Indication: Gastritis prophylaxis
     Dosage: DOSE UNKNOWN
     Route: 065
     Dates: start: 20230227
  24. MAGNESIUM OXIDE [Concomitant]
     Active Substance: MAGNESIUM OXIDE
     Indication: Constipation prophylaxis
     Dosage: DOSE UNKNOWN
     Route: 065
     Dates: start: 20230309
  25. ELDECALCITOL [Concomitant]
     Active Substance: ELDECALCITOL
     Indication: Osteoporosis prophylaxis
     Dosage: DOSE UNKNOWN
     Route: 065
     Dates: start: 20230313, end: 20230801
  26. GRANISETRON HYDROCHLORIDE [Concomitant]
     Active Substance: GRANISETRON HYDROCHLORIDE
     Indication: Prophylaxis of nausea and vomiting
     Dosage: DOSE UNKNOWN
     Route: 065
     Dates: start: 20230328, end: 20230511
  27. PREDNISOLONE [Concomitant]
     Active Substance: PREDNISOLONE
     Indication: Product used for unknown indication
     Dosage: DOSE UNKNOWN
     Route: 065
     Dates: end: 20230206
  28. PREDNISOLONE [Concomitant]
     Active Substance: PREDNISOLONE
     Route: 065
     Dates: start: 20230207, end: 20230209
  29. PREDNISOLONE [Concomitant]
     Active Substance: PREDNISOLONE
     Route: 065
     Dates: start: 20230210, end: 20230211
  30. PREDNISOLONE [Concomitant]
     Active Substance: PREDNISOLONE
     Route: 065
     Dates: start: 20230212
  31. PREDNISOLONE [Concomitant]
     Active Substance: PREDNISOLONE
     Route: 065
     Dates: start: 20230227, end: 20230312
  32. PREDNISOLONE [Concomitant]
     Active Substance: PREDNISOLONE
     Route: 065
     Dates: start: 20230313, end: 20230403
  33. PREDNISOLONE [Concomitant]
     Active Substance: PREDNISOLONE
     Route: 065
     Dates: start: 20230404, end: 20230417
  34. PREDNISOLONE [Concomitant]
     Active Substance: PREDNISOLONE
     Route: 065
     Dates: start: 20230418, end: 20230517
  35. PREDNISOLONE [Concomitant]
     Active Substance: PREDNISOLONE
     Route: 065
     Dates: start: 20230520, end: 20230612
  36. PREDNISOLONE [Concomitant]
     Active Substance: PREDNISOLONE
     Route: 065
     Dates: start: 20230613, end: 20230619
  37. PREDNISOLONE [Concomitant]
     Active Substance: PREDNISOLONE
     Route: 065
     Dates: start: 20230620
  38. PREDNISOLONE [Concomitant]
     Active Substance: PREDNISOLONE
     Dosage: DOSE UNKNOWN
     Route: 065
     Dates: start: 20230906

REACTIONS (8)
  - Rash [Recovering/Resolving]
  - Liver function test increased [Recovering/Resolving]
  - Erythema [Recovering/Resolving]
  - Steroid diabetes [Recovering/Resolving]
  - Hepatic function abnormal [Recovering/Resolving]
  - Drug reaction with eosinophilia and systemic symptoms [Unknown]
  - Nasopharyngitis [Recovering/Resolving]
  - Drug eruption [Recovered/Resolved]

NARRATIVE: CASE EVENT DATE: 20230101
